FAERS Safety Report 8389707-1 (Version None)
Quarter: 2012Q2

REPORT INFORMATION
  Report Type: 
  Country: None (occurrence: None)
  Receive Date: 20120523
  Receipt Date: 20120523
  Transmission Date: 20120825
  Serious: Yes (Life-Threatening, Hospitalization)
  Sender: FDA-Public Use
  Company Number: None

PATIENT
  Age: 79 Year
  Sex: Male
  Weight: 70.3075 kg

DRUGS (2)
  1. BYETTA [Suspect]
     Indication: DIABETES MELLITUS
     Dates: start: 20070101, end: 20080101
  2. ACTOS [Suspect]
     Dates: start: 20020101, end: 20070101

REACTIONS (3)
  - BILE DUCT CANCER [None]
  - CHOLANGITIS ACUTE [None]
  - PANCREATITIS ACUTE [None]
